FAERS Safety Report 9321322 (Version 1)
Quarter: 2013Q2

REPORT INFORMATION
  Report Type: Spontaneous
  Country: US (occurrence: US)
  Receive Date: 20130531
  Receipt Date: 20130531
  Transmission Date: 20140414
  Serious: Yes (Hospitalization)
  Sender: FDA-Public Use
  Company Number: US-ALEXION-A201300804

PATIENT
  Age: 34 Year
  Sex: Female
  Weight: 77 kg

DRUGS (2)
  1. SOLIRIS 300MG [Suspect]
     Indication: PRODUCT USED FOR UNKNOWN INDICATION
     Dosage: UNK
     Route: 042
  2. COUMADIN [Suspect]
     Indication: PRODUCT USED FOR UNKNOWN INDICATION
     Dosage: UNK

REACTIONS (3)
  - Epistaxis [Unknown]
  - Prothrombin time prolonged [Unknown]
  - International normalised ratio fluctuation [Unknown]
